FAERS Safety Report 25200200 (Version 2)
Quarter: 2025Q2

REPORT INFORMATION
  Report Type: Spontaneous
  Country: US (occurrence: US)
  Receive Date: 20250415
  Receipt Date: 20250603
  Transmission Date: 20250716
  Serious: No
  Sender: SANOFI AVENTIS
  Company Number: US-SA-2025SA107578

PATIENT
  Age: 2 Year
  Sex: Female

DRUGS (1)
  1. DUPIXENT [Suspect]
     Active Substance: DUPILUMAB
     Indication: Dermatitis atopic
     Dosage: 200 MG, Q4W
     Route: 058

REACTIONS (7)
  - Dry skin [Recovering/Resolving]
  - Skin fissures [Recovering/Resolving]
  - Eye pain [Unknown]
  - Initial insomnia [Unknown]
  - Pruritus [Recovering/Resolving]
  - Eye irritation [Unknown]
  - Rash [Unknown]

NARRATIVE: CASE EVENT DATE: 20250401
